FAERS Safety Report 9882533 (Version 2)
Quarter: 2014Q1

REPORT INFORMATION
  Report Type: Report from Study
  Country: GB (occurrence: GB)
  Receive Date: 20140207
  Receipt Date: 20140311
  Transmission Date: 20141002
  Serious: Yes (Hospitalization)
  Sender: FDA-Public Use
  Company Number: GB-ASTELLAS-2014EU001110

PATIENT
  Age: 16 Year
  Sex: Male
  Weight: 50 kg

DRUGS (9)
  1. TACROLIMUS MR4 CAPSULES [Suspect]
     Indication: PROPHYLAXIS AGAINST TRANSPLANT REJECTION
     Dosage: 4 MG, UID/QD
     Route: 048
     Dates: start: 20130213
  2. PREDNISOLONE [Concomitant]
     Indication: PROPHYLAXIS AGAINST TRANSPLANT REJECTION
     Dosage: 5 MG, UID/QD
     Route: 048
     Dates: start: 20120331
  3. MAGNESIUM [Concomitant]
     Indication: MINERAL SUPPLEMENTATION
     Dosage: 4 MMOL, MONTHLY
     Route: 048
     Dates: start: 20120331
  4. MYCOPHENOLATE [Concomitant]
     Indication: PROPHYLAXIS AGAINST TRANSPLANT REJECTION
     Dosage: 500 MG, BID
     Route: 048
     Dates: start: 20120613
  5. GENTAMICIN [Concomitant]
     Indication: INFECTION PROPHYLAXIS
     Dosage: UNK
     Route: 042
     Dates: start: 20140121, end: 20140124
  6. CEFOTAXIME [Concomitant]
     Indication: INFECTION
     Dosage: UNK
     Route: 065
     Dates: start: 20140121, end: 20140124
  7. AMOXICILLIN [Concomitant]
     Indication: INFECTION
     Dosage: 250 MG, TID
     Route: 048
     Dates: start: 20140121, end: 20140127
  8. PARACETAMOL [Concomitant]
     Indication: ANALGESIC THERAPY
     Dosage: UNK
     Route: 065
  9. PARACETAMOL [Concomitant]
     Indication: BODY TEMPERATURE

REACTIONS (3)
  - Pyrexia [Recovered/Resolved]
  - Vomiting [Recovered/Resolved]
  - Abdominal pain [Recovered/Resolved]
